FAERS Safety Report 6867243-9 (Version None)
Quarter: 2010Q3

REPORT INFORMATION
  Report Type: 
  Country: None (occurrence: None)
  Receive Date: 20100722
  Receipt Date: 20100722
  Transmission Date: 20110219
  Serious: Yes (Disabling)
  Sender: FDA-Public Use
  Company Number: None

PATIENT
  Sex: Female
  Weight: 62.1428 kg

DRUGS (1)
  1. ABILIFY [Suspect]
     Indication: BIPOLAR DISORDER
     Dosage: 10MG ONCE DAILY ORALLY
     Route: 048
     Dates: start: 20050601

REACTIONS (4)
  - DROOLING [None]
  - DYSKINESIA [None]
  - HYPOPHAGIA [None]
  - IMPAIRED WORK ABILITY [None]
